FAERS Safety Report 7107341-8 (Version None)
Quarter: 2010Q4

REPORT INFORMATION
  Report Type: 
  Country: None (occurrence: None)
  Receive Date: 20101112
  Receipt Date: 20101112
  Transmission Date: 20110411
  Serious: No
  Sender: FDA-Public Use
  Company Number: None

PATIENT
  Age: 62 Year
  Sex: Female
  Weight: 77.1115 kg

DRUGS (2)
  1. VENLAFAXINE HCL EXTENDED-RELEASE [Suspect]
     Indication: DEPRESSION
     Dosage: 1 CAPSULE ONCE A DAY PO
     Route: 048
     Dates: start: 20100715, end: 20101103
  2. VENLAFAXINE HCL EXTENDED-RELEASE [Suspect]
     Indication: PANIC ATTACK
     Dosage: 1 CAPSULE ONCE A DAY PO
     Route: 048
     Dates: start: 20100715, end: 20101103

REACTIONS (7)
  - BALANCE DISORDER [None]
  - DIZZINESS [None]
  - HEADACHE [None]
  - NAUSEA [None]
  - PARAESTHESIA ORAL [None]
  - PRODUCT SUBSTITUTION ISSUE [None]
  - VISION BLURRED [None]
